FAERS Safety Report 26010944 (Version 1)
Quarter: 2025Q4

REPORT INFORMATION
  Report Type: Spontaneous
  Country: US (occurrence: None)
  Receive Date: 20251106
  Receipt Date: 20251106
  Transmission Date: 20260118
  Serious: Yes (Hospitalization)
  Sender: FDA-CTU
  Company Number: None

PATIENT
  Age: 48 Year
  Sex: Male

DRUGS (3)
  1. GLASSIA [Suspect]
     Active Substance: .ALPHA.1-PROTEINASE INHIBITOR HUMAN
     Indication: Alpha-1 antitrypsin deficiency
     Dosage: 8218 MG  WEEKLY INTRAVENOUS?
     Route: 042
     Dates: start: 20201103
  2. GLASSIA [Suspect]
     Active Substance: .ALPHA.1-PROTEINASE INHIBITOR HUMAN
     Indication: Alpha-1 antitrypsin deficiency
     Dosage: 8218 MG WEEKLY INTRAVENOUS?
     Route: 042
  3. NORMAL SALINE FLUSH (10ML) [Concomitant]

REACTIONS (2)
  - Illness [None]
  - Immune system disorder [None]

NARRATIVE: CASE EVENT DATE: 20250928
